FAERS Safety Report 10177442 (Version 1)
Quarter: 2014Q2

REPORT INFORMATION
  Report Type: Spontaneous
  Country: CN (occurrence: CN)
  Receive Date: 20140516
  Receipt Date: 20140516
  Transmission Date: 20141212
  Serious: Yes (Hospitalization)
  Sender: FDA-Public Use
  Company Number: PHHY2014CN059145

PATIENT
  Age: 73 Year
  Sex: Male
  Weight: 51 kg

DRUGS (2)
  1. DIOVAN [Suspect]
     Indication: HYPERTENSION
     Dosage: 80 MG, BID
     Route: 048
     Dates: start: 20131011, end: 20131028
  2. DIOVAN [Suspect]
     Indication: VENTRICULAR REMODELLING

REACTIONS (4)
  - Palpitations [Recovering/Resolving]
  - Back pain [Recovering/Resolving]
  - Metabolic disorder [Recovering/Resolving]
  - Malnutrition [Recovering/Resolving]
